FAERS Safety Report 9447866 (Version 1)
Quarter: 2013Q3

REPORT INFORMATION
  Report Type: Spontaneous
  Country: FR (occurrence: FR)
  Receive Date: 20130808
  Receipt Date: 20130808
  Transmission Date: 20140515
  Serious: Yes (Hospitalization)
  Sender: FDA-Public Use
  Company Number: FR-BRISTOL-MYERS SQUIBB COMPANY-19174812

PATIENT
  Age: 67 Year
  Sex: Female

DRUGS (4)
  1. GLUCOPHAGE TABS 500 MG [Suspect]
     Indication: TYPE 2 DIABETES MELLITUS
     Route: 048
  2. TENSTATEN [Suspect]
     Indication: HYPERTENSION
     Dosage: 1DF?50 MG
     Route: 048
     Dates: end: 20130610
  3. TRIATEC [Suspect]
     Indication: HYPERTENSION
     Route: 048
  4. POTASSIUM CHLORIDE [Suspect]
     Indication: HYPOKALAEMIA
     Dosage: 1 D- 10 %?FREQ-EVERY TWO DAYS
     Route: 048

REACTIONS (1)
  - Hypokalaemia [Recovered/Resolved]
